FAERS Safety Report 5017194-X (Version None)
Quarter: 2006Q2

REPORT INFORMATION
  Report Type: 
  Country: None (occurrence: None)
  Receive Date: 20060414
  Receipt Date: 20060127
  Transmission Date: 20061013
  Serious: No
  Sender: FDA-Public Use
  Company Number: 2006SP000485

PATIENT
  Age: 42 Year
  Sex: Male
  Weight: 86 kg

DRUGS (1)
  1. LUNESTA [Suspect]
     Dosage: 3 MG;PRN;ORAL
     Route: 048
     Dates: start: 20060101

REACTIONS (1)
  - DRUG EFFECT DECREASED [None]
